FAERS Safety Report 15797862 (Version 1)
Quarter: 2019Q1

REPORT INFORMATION
  Report Type: Spontaneous
  Country: JP (occurrence: JP)
  Receive Date: 20190108
  Receipt Date: 20190108
  Transmission Date: 20190417
  Serious: Yes (Other)
  Sender: FDA-Public Use
  Company Number: JP-ACS-001296

PATIENT
  Age: 57 Year
  Sex: Male

DRUGS (1)
  1. PENICILLIN G [Suspect]
     Active Substance: PENICILLIN G
     Indication: OSTEOMYELITIS BACTERIAL
     Route: 041

REACTIONS (2)
  - False positive investigation result [Recovered/Resolved]
  - Injection site pain [Unknown]
